FAERS Safety Report 4280371-X (Version None)
Quarter: 2004Q1

REPORT INFORMATION
  Report Type: 
  Country: None (occurrence: None)
  Receive Date: 20040126
  Receipt Date: 20040123
  Transmission Date: 20041129
  Serious: Yes (Hospitalization, Other)
  Sender: FDA-Public Use
  Company Number: HQWYE390303DEC03

PATIENT
  Age: 15 Year
  Sex: Female
  Weight: 59.02 kg

DRUGS (3)
  1. EFFEXOR XR [Suspect]
     Indication: DEPRESSION
     Dosage: 150 MG 1X PER 1 DAY, ORAL
     Route: 048
     Dates: start: 20030623, end: 20030924
  2. ACETYLSALICYLIC ACID SRT [Suspect]
     Dosage: ORAL
     Route: 048
  3. ADVIL [Suspect]
     Dosage: ORAL
     Route: 048

REACTIONS (5)
  - HOSTILITY [None]
  - INTENTIONAL OVERDOSE [None]
  - PERSONALITY CHANGE [None]
  - SCREAMING [None]
  - SUICIDE ATTEMPT [None]
